FAERS Safety Report 26137316 (Version 1)
Quarter: 2025Q4

REPORT INFORMATION
  Report Type: Report from Study
  Country: None (occurrence: EU)
  Receive Date: 20251209
  Receipt Date: 20251209
  Transmission Date: 20260118
  Serious: Yes (Life-Threatening)
  Sender: ALNYLAM PHARMACEUTICALS
  Company Number: EU-ALNYLAM PHARMACEUTICALS, INC.-ALN-2025-007866

PATIENT
  Age: 69 Year
  Weight: 75 kg

DRUGS (3)
  1. AMVUTTRA [Suspect]
     Active Substance: VUTRISIRAN
     Indication: Product used for unknown indication
     Dosage: 25, Q3M
     Route: 065
  2. AMVUTTRA [Suspect]
     Active Substance: VUTRISIRAN
     Dosage: 25, Q3M
     Route: 065
  3. VITAMIN A [Concomitant]
     Active Substance: VITAMIN A
     Indication: Product used for unknown indication
     Dosage: 2500 INTERNATIONAL UNIT, QD

REACTIONS (1)
  - Squamous cell carcinoma [Unknown]
